FAERS Safety Report 7593922-4 (Version None)
Quarter: 2011Q3

REPORT INFORMATION
  Report Type: 
  Country: None (occurrence: None)
  Receive Date: 20110706
  Receipt Date: 20110627
  Transmission Date: 20111222
  Serious: Yes (Hospitalization)
  Sender: FDA-Public Use
  Company Number: CH-UCBSA-034390

PATIENT
  Sex: Male
  Weight: 86 kg

DRUGS (15)
  1. LORAZEPAM [Concomitant]
     Indication: ANXIETY
     Dosage: 1 MG, IF REQUIRED
  2. MADOPAR DR [Concomitant]
     Dates: start: 20051015, end: 20090424
  3. NIMOTOP [Concomitant]
     Indication: PERIPHERAL VASCULAR DISORDER
  4. NEUPRO [Suspect]
     Dates: start: 20100428, end: 20100803
  5. MADOPAR DR [Concomitant]
     Indication: PARKINSON'S DISEASE
     Dates: start: 20050929, end: 20051006
  6. MADOPAR DR [Concomitant]
     Dates: start: 20090425, end: 20101001
  7. CLAROPRAM [Concomitant]
     Indication: DEPRESSION
  8. NEUPRO [Suspect]
     Dates: start: 20100804
  9. NEUPRO [Suspect]
     Indication: PARKINSON'S DISEASE
     Dates: start: 20100420, end: 20100427
  10. MADOPAR DR [Concomitant]
     Dosage: 250 MG, 2 1/2 TBL
     Dates: start: 20051007, end: 20051014
  11. TASMAR [Concomitant]
     Indication: PARKINSON'S DISEASE
     Dates: start: 20110228
  12. MADOPAR DR [Concomitant]
     Dates: start: 20101101
  13. MADOPAR LIQUID [Concomitant]
     Indication: PARKINSON'S DISEASE
     Dates: start: 20050905
  14. METO ZEROC [Concomitant]
     Indication: HYPERTENSION
  15. CETRIN [Concomitant]
     Indication: HYPERSENSITIVITY

REACTIONS (2)
  - DIARRHOEA [None]
  - COELIAC DISEASE [None]
